FAERS Safety Report 4323671-7 (Version None)
Quarter: 2004Q1

REPORT INFORMATION
  Report Type: 
  Country: None (occurrence: None)
  Receive Date: 20040323
  Receipt Date: 20040309
  Transmission Date: 20041129
  Serious: Yes (Hospitalization, Other)
  Sender: FDA-Public Use
  Company Number: 235706

PATIENT
  Sex: Male

DRUGS (4)
  1. NOVORAPID PENFILL 3ML (NOVORAPID PENFILL 3ML) (INSULIN ASPART) SOLUTIO [Suspect]
     Indication: DIABETES MELLITUS INSULIN-DEPENDENT
     Dosage: INTRAUTERINE
     Route: 015
     Dates: start: 20030829, end: 20040229
  2. NOVOLIN GE TORONTO PENFIL (INSULIN HUMAN) SOLUTION FOR INJECTION [Concomitant]
  3. CALCIUM (CALCIUM) [Concomitant]
  4. MULTIVITAMIN [Concomitant]

REACTIONS (5)
  - HYPOGLYCAEMIA NEONATAL [None]
  - LARGE FOR DATES BABY [None]
  - MATERNAL DRUGS AFFECTING FOETUS [None]
  - NEONATAL RESPIRATORY DISTRESS SYNDROME [None]
  - PREMATURE BABY [None]
